FAERS Safety Report 14030862 (Version 1)
Quarter: 2017Q4

REPORT INFORMATION
  Report Type: Spontaneous
  Country: JP (occurrence: JP)
  Receive Date: 20171002
  Receipt Date: 20171002
  Transmission Date: 20180321
  Serious: Yes (Hospitalization, Other)
  Sender: FDA-Public Use
  Company Number: JP-ACCORD-037890

PATIENT
  Age: 74 Year
  Sex: Male
  Weight: 41.4 kg

DRUGS (4)
  1. FOLINIC ACID [Suspect]
     Active Substance: LEUCOVORIN
     Indication: RECTAL CANCER STAGE III
     Dosage: RECEIVED AS FOLFIRI REGIMEN: 1ST COURSE ON 24-JUL-2013, THEN DAY 01 AND 8 OF 2ND COURSE
     Dates: start: 20130807
  2. FLUOROURACIL. [Suspect]
     Active Substance: FLUOROURACIL
     Indication: RECTAL CANCER STAGE III
     Dosage: ALSO RECEIVED 2400 MG/M^2 48 HOURS CONTINUOUS ADMINISTRATION.
     Dates: start: 20130807
  3. CETUXIMAB. [Suspect]
     Active Substance: CETUXIMAB
     Indication: RECTAL CANCER STAGE III
     Dosage: RECEIVED 250 MG/M2 ON DAY 01 AND 08 OF 2ND COURSE
     Dates: start: 201308
  4. IRINOTECAN [Suspect]
     Active Substance: IRINOTECAN
     Indication: RECTAL CANCER STAGE III
     Dosage: RECEIVED 1ST COURSE 150 MG/M2 ON DAY 01 ON 24-JUL-2013, THEN 120 MG/M2 ON DAY 01 OF 2ND COURSE.
     Dates: start: 20130807

REACTIONS (2)
  - Interstitial lung disease [Recovering/Resolving]
  - Neutropenia [Unknown]
